FAERS Safety Report 19038887 (Version 1)
Quarter: 2021Q1

REPORT INFORMATION
  Report Type: Spontaneous
  Country: FR (occurrence: FR)
  Receive Date: 20210322
  Receipt Date: 20210322
  Transmission Date: 20210420
  Serious: Yes (Other)
  Sender: FDA-Public Use
  Company Number: FR-RK PHARMA, INC-20210300002

PATIENT
  Age: 53 Year
  Sex: Female

DRUGS (3)
  1. MYCOPHENOLIC ACID DR UNSPECIFIED [Suspect]
     Active Substance: MYCOPHENOLIC ACID
     Dosage: UNK
  2. MYCOPHENOLIC ACID DR UNSPECIFIED [Suspect]
     Active Substance: MYCOPHENOLIC ACID
     Dosage: UNK
  3. TACROLIMUS. [Suspect]
     Active Substance: TACROLIMUS
     Dosage: UNK

REACTIONS (3)
  - Lower urinary tract symptoms [Recovered/Resolved]
  - COVID-19 [Recovered/Resolved]
  - Cystitis [Recovered/Resolved]
